FAERS Safety Report 5184965-9 (Version None)
Quarter: 2006Q4

REPORT INFORMATION
  Report Type: 
  Country: None (occurrence: None)
  Receive Date: 20061220
  Receipt Date: 20060515
  Transmission Date: 20070319
  Serious: No
  Sender: FDA-Public Use
  Company Number: US-GLAXOSMITHKLINE-A0605560A

PATIENT
  Age: 17 Year
  Sex: Male

DRUGS (1)
  1. NICODERM CQ [Suspect]

REACTIONS (6)
  - EYE SWELLING [None]
  - INTENTIONAL DRUG MISUSE [None]
  - LIP SWELLING [None]
  - OCULAR HYPERAEMIA [None]
  - SKIN DISCOLOURATION [None]
  - SWELLING FACE [None]
